FAERS Safety Report 12978978 (Version 1)
Quarter: 2016Q4

REPORT INFORMATION
  Report Type: Spontaneous
  Country: US (occurrence: US)
  Receive Date: 20161128
  Receipt Date: 20161128
  Transmission Date: 20170207
  Serious: No
  Sender: FDA-Public Use
  Company Number: None

PATIENT

DRUGS (2)
  1. NITROGLYCERIN SL 0.4MG TABLETS [Suspect]
     Active Substance: NITROGLYCERIN
  2. NITRO TRANSDERMAL PATCHES 0.4MG/HR [Suspect]
     Active Substance: NITROGLYCERIN

REACTIONS (2)
  - Transcription medication error [None]
  - Drug dispensing error [None]
